FAERS Safety Report 11742067 (Version 2)
Quarter: 2016Q1

REPORT INFORMATION
  Report Type: Spontaneous
  Country: US (occurrence: US)
  Receive Date: 20151116
  Receipt Date: 20160204
  Transmission Date: 20160525
  Serious: No
  Sender: FDA-Public Use
  Company Number: US-PFIZER INC-2015375428

PATIENT
  Age: 72 Year
  Sex: Female

DRUGS (3)
  1. GABAPENTIN. [Suspect]
     Active Substance: GABAPENTIN
     Indication: NERVOUS SYSTEM DISORDER
     Dosage: 600 MG, 3X/DAY
  2. GABAPENTIN. [Suspect]
     Active Substance: GABAPENTIN
     Indication: BURNING SENSATION
     Dosage: UNK, 2X/DAY
     Dates: start: 20151026
  3. GABAPENTIN. [Suspect]
     Active Substance: GABAPENTIN
     Dosage: UNK, 1X/DAY
     Dates: start: 201511

REACTIONS (14)
  - Dizziness [Unknown]
  - Balance disorder [Unknown]
  - Joint stiffness [Unknown]
  - Feeling abnormal [Unknown]
  - Pain in extremity [Unknown]
  - Product use issue [Unknown]
  - Fatigue [Unknown]
  - Impaired driving ability [Unknown]
  - Sadism [Unknown]
  - Disturbance in attention [Unknown]
  - Back pain [Unknown]
  - Drug ineffective [Unknown]
  - Confusional state [Unknown]
  - Mood altered [Unknown]
